FAERS Safety Report 4650027-X (Version None)
Quarter: 2005Q2

REPORT INFORMATION
  Report Type: 
  Country: None (occurrence: None)
  Receive Date: 20050502
  Receipt Date: 20050428
  Transmission Date: 20051028
  Serious: Yes (Other)
  Sender: FDA-Public Use
  Company Number: US-JNJFOC-20050400808

PATIENT
  Sex: Female
  Weight: 44.45 kg

DRUGS (7)
  1. FLEXERIL [Interacting]
  2. ULTRAM [Suspect]
     Dosage: UNKNOWN
     Route: 049
  3. NYQUIL [Concomitant]
  4. NYQUIL [Concomitant]
  5. NYQUIL [Concomitant]
  6. NYQUIL [Concomitant]
  7. NYQUIL [Concomitant]
     Dosage: UNKNOWN

REACTIONS (9)
  - ARRHYTHMIA [None]
  - ASTHENIA [None]
  - CONVULSION [None]
  - DIZZINESS [None]
  - DRUG INTERACTION [None]
  - HEADACHE [None]
  - NERVOUS SYSTEM DISORDER [None]
  - PARAESTHESIA [None]
  - TACHYCARDIA [None]
